FAERS Safety Report 10869544 (Version 1)
Quarter: 2015Q1

REPORT INFORMATION
  Report Type: Spontaneous
  Country: US (occurrence: US)
  Receive Date: 20150226
  Receipt Date: 20150226
  Transmission Date: 20150721
  Serious: Yes (Other)
  Sender: FDA-Public Use
  Company Number: US-AMGEN-USASP2015016504

PATIENT

DRUGS (6)
  1. NEULASTA [Suspect]
     Active Substance: PEGFILGRASTIM
     Indication: PRODUCT USED FOR UNKNOWN INDICATION
     Dosage: UNK
     Route: 065
  2. DEXAMETHASONE. [Suspect]
     Active Substance: DEXAMETHASONE
     Indication: PRODUCT USED FOR UNKNOWN INDICATION
     Dosage: UNK
     Route: 065
  3. FLUOROURACIL. [Concomitant]
     Active Substance: FLUOROURACIL
     Indication: INVASIVE DUCTAL BREAST CARCINOMA
     Dosage: UNK
  4. ELLENCE [Concomitant]
     Active Substance: EPIRUBICIN HYDROCHLORIDE
     Indication: INVASIVE DUCTAL BREAST CARCINOMA
     Dosage: UNK
  5. TAXOTERE [Concomitant]
     Active Substance: DOCETAXEL
     Indication: INVASIVE DUCTAL BREAST CARCINOMA
     Dosage: UNK
  6. CYTOXAN [Concomitant]
     Active Substance: CYCLOPHOSPHAMIDE
     Indication: INVASIVE DUCTAL BREAST CARCINOMA
     Dosage: UNK

REACTIONS (41)
  - Alopecia [Unknown]
  - Neuropathy peripheral [Unknown]
  - Depression [Unknown]
  - Temperature intolerance [Unknown]
  - Muscle spasms [Unknown]
  - Pain [Unknown]
  - Axillary pain [Unknown]
  - Muscle twitching [Unknown]
  - Arthralgia [Unknown]
  - Abdominal discomfort [Unknown]
  - Swelling face [Unknown]
  - Restlessness [Unknown]
  - Pharyngeal oedema [Unknown]
  - Epistaxis [Unknown]
  - Fatigue [Unknown]
  - Abnormal dreams [Unknown]
  - Myalgia [Unknown]
  - Dysphonia [Unknown]
  - Feeling abnormal [Unknown]
  - Eye irritation [Unknown]
  - Dry mouth [Unknown]
  - Abdominal distension [Unknown]
  - Flushing [Unknown]
  - Rash [Unknown]
  - Lacrimation increased [Unknown]
  - Cold sweat [Unknown]
  - Dysgeusia [Unknown]
  - Procedural pain [Unknown]
  - Joint stiffness [Unknown]
  - Abdominal pain [Unknown]
  - Musculoskeletal chest pain [Unknown]
  - Hot flush [Unknown]
  - Fluid retention [Unknown]
  - Dizziness [Unknown]
  - Limb discomfort [Unknown]
  - Abdominal pain upper [Unknown]
  - Gingival pain [Unknown]
  - Bone pain [Unknown]
  - Asthenia [Unknown]
  - Anxiety [Unknown]
  - Musculoskeletal stiffness [Unknown]
